FAERS Safety Report 15848115 (Version 2)
Quarter: 2019Q1

REPORT INFORMATION
  Report Type: Report from Study
  Country: IT (occurrence: IT)
  Receive Date: 20190121
  Receipt Date: 20190124
  Transmission Date: 20190417
  Serious: Yes (Hospitalization)
  Sender: FDA-Public Use
  Company Number: IT-MYLANLABS-2019M1004138

PATIENT
  Age: 35 Year
  Sex: Male

DRUGS (3)
  1. QUETIAPINE. [Suspect]
     Active Substance: QUETIAPINE
     Indication: BIPOLAR DISORDER
     Dosage: 600 MILLIGRAM, QD
     Route: 048
  2. RIVOTRIL [Suspect]
     Active Substance: CLONAZEPAM
     Indication: BIPOLAR DISORDER
     Dosage: 5 DOSAGE FORM, QD
     Route: 048
  3. AKINETON [Suspect]
     Active Substance: BIPERIDEN HYDROCHLORIDE
     Indication: PARKINSONISM
     Dosage: 1 DOSAGE FORM, QW
     Route: 030

REACTIONS (3)
  - Gait disturbance [Recovering/Resolving]
  - Malaise [Recovering/Resolving]
  - Sedation [Recovering/Resolving]

NARRATIVE: CASE EVENT DATE: 20180113
